FAERS Safety Report 19971918 (Version 1)
Quarter: 2021Q4

REPORT INFORMATION
  Report Type: Spontaneous
  Country: US (occurrence: US)
  Receive Date: 20211019
  Receipt Date: 20211019
  Transmission Date: 20220304
  Serious: Yes (Other)
  Sender: FDA-Public Use
  Company Number: US-MIC-A0P5B00000SMR45EAD

PATIENT
  Sex: Male
  Weight: 72.56 kg

DRUGS (1)
  1. NINLARO [Suspect]
     Active Substance: IXAZOMIB CITRATE
     Indication: Chronic myelomonocytic leukaemia
     Dosage: 3 MILLIGRAM
     Route: 048

REACTIONS (5)
  - Protein intolerance [Unknown]
  - Decreased appetite [Unknown]
  - Fatigue [Unknown]
  - Diarrhoea [Unknown]
  - Constipation [Unknown]
